FAERS Safety Report 14692919 (Version 5)
Quarter: 2018Q2

REPORT INFORMATION
  Report Type: Report from Study
  Country: US (occurrence: US)
  Receive Date: 20180329
  Receipt Date: 20180424
  Transmission Date: 20180711
  Serious: Yes (Hospitalization, Other)
  Sender: FDA-Public Use
  Company Number: US-GILEAD-2018-0329112

PATIENT
  Age: 62 Year
  Sex: Female
  Weight: 80.69 kg

DRUGS (3)
  1. REVATIO [Concomitant]
     Active Substance: SILDENAFIL CITRATE
  2. AMBRISENTAN [Suspect]
     Active Substance: AMBRISENTAN
     Dosage: 10 MG, QD
     Route: 048
  3. AMBRISENTAN [Suspect]
     Active Substance: AMBRISENTAN
     Indication: PULMONARY HYPERTENSION
     Dosage: 5 MG, QD
     Route: 065
     Dates: start: 20150528

REACTIONS (9)
  - Dyspnoea [Unknown]
  - Tachycardia [Unknown]
  - Cerebrovascular accident [Unknown]
  - Catheterisation cardiac [Unknown]
  - Fall [Unknown]
  - Fluid overload [Unknown]
  - Headache [Unknown]
  - Pulmonary arterial pressure increased [Not Recovered/Not Resolved]
  - Chest pain [Unknown]

NARRATIVE: CASE EVENT DATE: 20180403
